FAERS Safety Report 6338629-6 (Version None)
Quarter: 2009Q3

REPORT INFORMATION
  Report Type: 
  Country: None (occurrence: None)
  Receive Date: 20090903
  Receipt Date: 20071205
  Transmission Date: 20100115
  Serious: Yes (Other)
  Sender: FDA-Public Use
  Company Number: US-ASTRAZENECA-2007UW19311

PATIENT
  Age: 15538 Day
  Sex: Male
  Weight: 92.5 kg

DRUGS (6)
  1. SEROQUEL [Suspect]
     Indication: BIPOLAR DISORDER
     Dosage: 200-400 MG
     Route: 048
     Dates: start: 19970301
  2. SEROQUEL [Suspect]
     Dosage: 100 MG - 200 MG
     Route: 048
     Dates: start: 20030814
  3. SERZONE [Concomitant]
     Route: 048
     Dates: start: 20020921
  4. ALTACE [Concomitant]
     Route: 048
     Dates: start: 20020917
  5. ZYPREXA [Concomitant]
     Route: 048
     Dates: start: 20020921
  6. DEPAKOTE ER [Concomitant]
     Dates: start: 20030917

REACTIONS (2)
  - DIABETES MELLITUS [None]
  - NEUROPATHY PERIPHERAL [None]
